FAERS Safety Report 20141144 (Version 1)
Quarter: 2021Q4

REPORT INFORMATION
  Report Type: Spontaneous
  Country: PT (occurrence: PT)
  Receive Date: 20211202
  Receipt Date: 20211202
  Transmission Date: 20220303
  Serious: No
  Sender: FDA-Public Use
  Company Number: PT-LUPIN PHARMACEUTICALS INC.-2021-23452

PATIENT
  Age: 51 Year
  Sex: Female

DRUGS (9)
  1. ESCITALOPRAM [Suspect]
     Active Substance: ESCITALOPRAM OXALATE
     Indication: Antidepressant therapy
     Dosage: 20 MILLIGRAM
     Route: 065
  2. METFORMIN HYDROCHLORIDE [Suspect]
     Active Substance: METFORMIN HYDROCHLORIDE
     Indication: Obesity
     Dosage: 1 DOSAGE FORM, QD, HARD GELATIN CAPSULE PRESCRIBED AS MAGISTRAL FORMULA; ONCE DAILY FOR 3 WEEKS
     Route: 065
  3. BUPROPION [Suspect]
     Active Substance: BUPROPION
     Indication: Obesity
     Dosage: 1 DOSAGE FORM, QD, HARD GELATIN CAPSULE PRESCRIBED AS MAGISTRAL FORMULA; ONCE DAILY FOR 3 WEEKS
     Route: 065
  4. CHLORDIAZEPOXIDE [Suspect]
     Active Substance: CHLORDIAZEPOXIDE
     Indication: Obesity
     Dosage: 1 DOSAGE FORM, QD, UNK, HARD GELATIN CAPSULE PRESCRIBED AS MAGISTRAL FORMULA; ONE DAILY FOR 3 WEEKS
     Route: 065
  5. PHENOLPHTHALEIN [Suspect]
     Active Substance: PHENOLPHTHALEIN
     Indication: Obesity
     Dosage: 1 DOSAGE FORM, QD, HARD GELATIN CAPSULE PRESCRIBED AS MAGISTRAL FORMULA; ONCE DAILY FOR 3 WEEKS
     Route: 065
  6. FUROSEMIDE [Suspect]
     Active Substance: FUROSEMIDE
     Indication: Obesity
     Dosage: 1 DOSAGE FORM, QD, HARD GELATIN CAPSULE PRESCRIBED AS MAGISTRAL FORMULA; ONCE DAILY FOR 3 WEEKS
     Route: 065
  7. ARTICHOKE [Suspect]
     Active Substance: ARTICHOKE
     Indication: Obesity
     Dosage: 1 DOSAGE FORM, QD, HARD GELATIN CAPSULE PRESCRIBED AS MAGISTRAL FORMULA; ONCE DAILY FOR 3 WEEKS
     Route: 065
  8. HERBALS [Suspect]
     Active Substance: HERBALS
     Indication: Obesity
     Dosage: 1 DOSAGE FORM, QD, HARD GELATIN CAPSULE PRESCRIBED AS MAGISTRAL FORMULA; ONCE DAILY FOR 3 WEEKS
     Route: 065
  9. LOFLAZEPATE D^ETHYLE [Concomitant]
     Indication: Anxiolytic therapy
     Dosage: 2 MILLIGRAM
     Route: 065

REACTIONS (2)
  - Tooth discolouration [Recovered/Resolved]
  - Dry mouth [Unknown]
